FAERS Safety Report 7849795-5 (Version None)
Quarter: 2011Q4

REPORT INFORMATION
  Report Type: 
  Country: None (occurrence: None)
  Receive Date: 20111025
  Receipt Date: 20111025
  Transmission Date: 20120403
  Serious: Yes (Hospitalization)
  Sender: FDA-Public Use
  Company Number: None

PATIENT
  Sex: Female
  Weight: 41.1 kg

DRUGS (6)
  1. METHOTREXATE [Suspect]
     Dosage: 15 MG
     Dates: end: 20110812
  2. DEXAMETHASONE [Suspect]
     Dosage: 182 MG
     Dates: end: 20110904
  3. ONCASPAR [Suspect]
     Dosage: 6450 IU
     Dates: end: 20111017
  4. VINCRISTINE SULFATE [Suspect]
     Dosage: 7.8 MG
     Dates: end: 20111017
  5. DOXORUBICIN HCL [Suspect]
     Dosage: 96 MG
     Dates: end: 20110829
  6. CYTARABINE [Suspect]
     Dosage: 797.5 MG
     Dates: end: 20111013

REACTIONS (15)
  - PAIN IN JAW [None]
  - HYPERGLYCAEMIA [None]
  - PERIPHERAL SENSORY NEUROPATHY [None]
  - DYSPHAGIA [None]
  - ABDOMINAL PAIN UPPER [None]
  - CONSTIPATION [None]
  - HEADACHE [None]
  - CONVULSION [None]
  - DRUG INEFFECTIVE [None]
  - MUSCULOSKELETAL STIFFNESS [None]
  - ANAL FISSURE [None]
  - URINARY TRACT INFECTION [None]
  - KLEBSIELLA BACTERAEMIA [None]
  - ARTHRALGIA [None]
  - PAIN [None]
